FAERS Safety Report 21631297 (Version 1)
Quarter: 2022Q4

REPORT INFORMATION
  Report Type: Spontaneous
  Country: CN (occurrence: CN)
  Receive Date: 20221123
  Receipt Date: 20221123
  Transmission Date: 20230112
  Serious: Yes (Hospitalization, Other)
  Sender: FDA-Public Use
  Company Number: CN-SA-2022SA471975

PATIENT
  Age: 71 Year
  Sex: Male

DRUGS (3)
  1. OXALIPLATIN [Suspect]
     Active Substance: OXALIPLATIN
     Indication: Cholangiocarcinoma
     Dosage: 120 MG, Q3W, D1/8
     Dates: start: 20211027
  2. GEMCITABINE [Suspect]
     Active Substance: GEMCITABINE
     Indication: Cholangiocarcinoma
     Dosage: 160 MG, Q3W, D1/8
     Dates: start: 20221027
  3. GEMCITABINE [Suspect]
     Active Substance: GEMCITABINE
     Dosage: 140 MG
     Dates: start: 2022

REACTIONS (8)
  - Immune-mediated myocarditis [Recovered/Resolved]
  - Palpitations [Recovered/Resolved]
  - Dizziness [Recovered/Resolved]
  - Syncope [Recovered/Resolved]
  - Sinus arrest [Recovered/Resolved]
  - Atrioventricular block complete [Recovered/Resolved]
  - Ventricular extrasystoles [Recovered/Resolved]
  - Bundle branch block bilateral [Recovered/Resolved]

NARRATIVE: CASE EVENT DATE: 20211124
